FAERS Safety Report 9973203 (Version 2)
Quarter: 2014Q1

REPORT INFORMATION
  Report Type: Report from Study
  Country: US (occurrence: US)
  Receive Date: 20140306
  Receipt Date: 20140306
  Transmission Date: 20141002
  Serious: No
  Sender: FDA-Public Use
  Company Number: US-ABBVIE-13P-163-1131159-00

PATIENT
  Age: 65 Year
  Sex: Female

DRUGS (8)
  1. HUMIRA [Suspect]
     Indication: PSORIASIS
     Dates: start: 20130714, end: 20130714
  2. HUMIRA [Suspect]
     Dates: start: 20130721, end: 20130721
  3. HUMIRA [Suspect]
     Dates: start: 20130805
  4. FISH OIL [Concomitant]
     Indication: PRODUCT USED FOR UNKNOWN INDICATION
  5. FLAXSEED OIL [Concomitant]
  6. NAPROXEN [Concomitant]
     Indication: PAIN
  7. TRAMADOL [Concomitant]
     Indication: ARTHRALGIA
     Dosage: AS NEEDED
  8. CLOBETASOL 0.05% [Concomitant]
     Indication: PSORIASIS

REACTIONS (4)
  - Nail growth abnormal [Not Recovered/Not Resolved]
  - Psoriasis [Unknown]
  - Nail psoriasis [Not Recovered/Not Resolved]
  - Injection site pruritus [Recovered/Resolved]
